FAERS Safety Report 23224484 (Version 1)
Quarter: 2023Q4

REPORT INFORMATION
  Report Type: Spontaneous
  Country: NL (occurrence: NL)
  Receive Date: 20231124
  Receipt Date: 20231124
  Transmission Date: 20240110
  Serious: Yes (Other)
  Sender: FDA-Public Use
  Company Number: None

PATIENT
  Age: 56 Year
  Sex: Female
  Weight: 75 kg

DRUGS (1)
  1. DOXYCYCLINE [Suspect]
     Active Substance: DOXYCYCLINE
     Indication: Pneumonia
     Dosage: 100 MILLIGRAM DAILY; 1 X PER DAY, BRAND NAME NOT SPECIFIED
     Dates: start: 20231026, end: 20231028

REACTIONS (4)
  - Foreign body in throat [Recovering/Resolving]
  - Hypersensitivity [Recovering/Resolving]
  - Erythema [Recovering/Resolving]
  - Paraesthesia [Recovering/Resolving]
